FAERS Safety Report 4867730-9 (Version None)
Quarter: 2005Q4

REPORT INFORMATION
  Report Type: 
  Country: None (occurrence: None)
  Receive Date: 20051222
  Receipt Date: 20051222
  Transmission Date: 20060501
  Serious: Yes (Hospitalization, Disabling)
  Sender: FDA-Public Use
  Company Number: None

PATIENT
  Age: 77 Year
  Sex: Male
  Weight: 95.2554 kg

DRUGS (9)
  1. COLCHICINE [Suspect]
     Indication: GOUT
     Dosage: ORAL
     Route: 048
  2. LIPITOR [Suspect]
     Dosage: ONCE DAILY ORAL (YEARS)
     Route: 048
  3. LIPITOR [Concomitant]
  4. NORVASC [Concomitant]
  5. INSULIN [Concomitant]
  6. GLIPIZIDE [Concomitant]
  7. ACTOS [Concomitant]
  8. MULTI-VITAMIN [Concomitant]
  9. OMEGA 3 [Concomitant]

REACTIONS (13)
  - ARTHRALGIA [None]
  - ASTHENIA [None]
  - C-REACTIVE PROTEIN INCREASED [None]
  - DRUG INTERACTION [None]
  - DRUG TOXICITY [None]
  - DYSSTASIA [None]
  - FALL [None]
  - HYPOTONIA [None]
  - MUSCLE ENZYME INCREASED [None]
  - MUSCULAR WEAKNESS [None]
  - MYOPATHY [None]
  - RENAL IMPAIRMENT [None]
  - SHOULDER PAIN [None]
